FAERS Safety Report 12422979 (Version 2)
Quarter: 2016Q2

REPORT INFORMATION
  Report Type: Spontaneous
  Country: BG (occurrence: BG)
  Receive Date: 20160601
  Receipt Date: 20160630
  Transmission Date: 20160815
  Serious: Yes (Hospitalization, Other)
  Sender: FDA-Public Use
  Company Number: BG-SUN PHARMACEUTICAL INDUSTRIES LTD-2016R1-117095

PATIENT
  Age: 37 Year
  Sex: Female

DRUGS (2)
  1. OLANZAPINE. [Suspect]
     Active Substance: OLANZAPINE
     Indication: PRODUCT USED FOR UNKNOWN INDICATION
     Dosage: 10MG (30 TABLETS), 0.3G
     Route: 048
  2. DAPSONE. [Suspect]
     Active Substance: DAPSONE
     Indication: PRODUCT USED FOR UNKNOWN INDICATION
     Dosage: 45 TABLETS (100 MG)
     Route: 048

REACTIONS (7)
  - Poisoning deliberate [Recovering/Resolving]
  - Coma [Recovered/Resolved]
  - Intentional overdose [Recovered/Resolved]
  - Hepatitis toxic [Recovered/Resolved]
  - Toxicity to various agents [Recovered/Resolved]
  - Methaemoglobinaemia [Recovered/Resolved]
  - Injury [Unknown]
